FAERS Safety Report 19269330 (Version 1)
Quarter: 2021Q2

REPORT INFORMATION
  Report Type: Spontaneous
  Country: US (occurrence: US)
  Receive Date: 20210517
  Receipt Date: 20210517
  Transmission Date: 20210717
  Serious: Yes (Other)
  Sender: FDA-Public Use
  Company Number: None

PATIENT
  Age: 64 Year
  Sex: Female
  Weight: 93.89 kg

DRUGS (2)
  1. VUMERITY [Concomitant]
     Active Substance: DIROXIMEL FUMARATE
     Dates: start: 20201120, end: 20210517
  2. VUMERITY [Suspect]
     Active Substance: DIROXIMEL FUMARATE

REACTIONS (1)
  - Lymphopenia [None]

NARRATIVE: CASE EVENT DATE: 20210517
